FAERS Safety Report 16098778 (Version 1)
Quarter: 2019Q1

REPORT INFORMATION
  Report Type: Spontaneous
  Country: US (occurrence: US)
  Receive Date: 20190321
  Receipt Date: 20190321
  Transmission Date: 20190418
  Serious: No
  Sender: FDA-Public Use
  Company Number: US-TEVA-2019-US-1017741

PATIENT
  Sex: Female

DRUGS (1)
  1. QUETIAPINE FUMARATE. [Suspect]
     Active Substance: QUETIAPINE FUMARATE
     Indication: DEPRESSION
     Dosage: DOSE STRENGTH:  100
     Route: 065
     Dates: start: 20190219

REACTIONS (6)
  - Oropharyngeal pain [Unknown]
  - Dry mouth [Unknown]
  - Throat tightness [Unknown]
  - Thirst [Unknown]
  - Muscular weakness [Unknown]
  - Snoring [Unknown]

NARRATIVE: CASE EVENT DATE: 20190219
